FAERS Safety Report 22039397 (Version 2)
Quarter: 2024Q1

REPORT INFORMATION
  Report Type: Spontaneous
  Country: US (occurrence: US)
  Receive Date: 20230227
  Receipt Date: 20240125
  Transmission Date: 20240410
  Serious: No
  Sender: FDA-Public Use
  Company Number: US-BAYER-2023A019799

PATIENT
  Age: 28 Year
  Sex: Female

DRUGS (1)
  1. MIRENA [Suspect]
     Active Substance: LEVONORGESTREL
     Indication: Contraception
     Dosage: 20?G/DAY
     Route: 015
     Dates: start: 201905

REACTIONS (4)
  - Swelling face [Recovered/Resolved]
  - Swelling [Recovered/Resolved]
  - Abdominal distension [Recovered/Resolved]
  - Pharyngeal swelling [Recovered/Resolved]
